FAERS Safety Report 15565134 (Version 1)
Quarter: 2018Q4

REPORT INFORMATION
  Report Type: Spontaneous
  Country: US (occurrence: US)
  Receive Date: 20181030
  Receipt Date: 20181030
  Transmission Date: 20190205
  Serious: No
  Sender: FDA-Public Use
  Company Number: PHEH2018US045293

PATIENT
  Sex: Male

DRUGS (2)
  1. SINEMET [Concomitant]
     Active Substance: CARBIDOPA\LEVODOPA
     Indication: PRODUCT USED FOR UNKNOWN INDICATION
     Route: 065
  2. AMANTADINE. [Suspect]
     Active Substance: AMANTADINE HYDROCHLORIDE
     Indication: PRODUCT USED FOR UNKNOWN INDICATION
     Route: 065

REACTIONS (11)
  - Memory impairment [Recovered/Resolved]
  - Photophobia [Recovered/Resolved]
  - Dry mouth [Recovered/Resolved]
  - Hallucination, visual [Recovered/Resolved]
  - Feeling abnormal [Recovered/Resolved]
  - Abnormal sleep-related event [Recovered/Resolved]
  - Abnormal dreams [Recovered/Resolved]
  - Intraocular pressure increased [Recovering/Resolving]
  - Dry throat [Recovered/Resolved]
  - Nightmare [Recovered/Resolved]
  - Eye pain [Recovered/Resolved]
